FAERS Safety Report 5792546-9 (Version None)
Quarter: 2008Q2

REPORT INFORMATION
  Report Type: 
  Country: None (occurrence: None)
  Receive Date: 20080626
  Receipt Date: 20080618
  Transmission Date: 20081010
  Serious: Yes (Hospitalization)
  Sender: FDA-Public Use
  Company Number: US-AMGEN-QUU288094

PATIENT
  Sex: Female

DRUGS (10)
  1. ENBREL [Suspect]
     Indication: PSORIASIS
  2. ACCOLATE [Concomitant]
  3. CELEXA [Concomitant]
  4. DIOVAN [Concomitant]
  5. FLOVENT [Concomitant]
  6. GLUCOPHAGE [Concomitant]
  7. HYDROCHLOROTHIAZIDE [Concomitant]
  8. NEXIUM [Concomitant]
  9. INSULIN [Concomitant]
  10. ZOCOR [Concomitant]

REACTIONS (2)
  - FRACTURE [None]
  - MENTAL STATUS CHANGES [None]
